FAERS Safety Report 8828937 (Version 1)
Quarter: 2012Q4

REPORT INFORMATION
  Report Type: Spontaneous
  Country: US (occurrence: None)
  Receive Date: 20121005
  Receipt Date: 20121005
  Transmission Date: 20130627
  Serious: Yes (Death)
  Sender: FDA-Public Use
  Company Number: None

PATIENT
  Age: 70 Year
  Sex: Female
  Weight: 81.3 kg

DRUGS (1)
  1. PROLIA [Suspect]
     Route: 058
     Dates: start: 20120822

REACTIONS (8)
  - Ear pain [None]
  - Herpes virus infection [None]
  - Somnolence [None]
  - Meningitis pneumococcal [None]
  - Renal failure acute [None]
  - Sepsis [None]
  - Coma [None]
  - Organ failure [None]
